FAERS Safety Report 21856476 (Version 1)
Quarter: 2023Q1

REPORT INFORMATION
  Report Type: Spontaneous
  Country: US (occurrence: US)
  Receive Date: 20230112
  Receipt Date: 20230112
  Transmission Date: 20230418
  Serious: No
  Sender: FDA-Public Use
  Company Number: US-ABBVIE-4230778

PATIENT
  Age: 85 Year
  Sex: Female
  Weight: 47 kg

DRUGS (4)
  1. SKYRIZI [Suspect]
     Active Substance: RISANKIZUMAB-RZAA
     Indication: Psoriasis
     Dosage: FORM STRENGTH: 150 MILLIGRAM
     Route: 058
     Dates: start: 20221208, end: 20221208
  2. STIVARGA [Concomitant]
     Active Substance: REGORAFENIB
     Indication: Neuroendocrine carcinoma
  3. OPDIVO [Concomitant]
     Active Substance: NIVOLUMAB
     Indication: Neuroendocrine carcinoma
  4. YERVOY [Concomitant]
     Active Substance: IPILIMUMAB
     Indication: Neuroendocrine carcinoma

REACTIONS (3)
  - Vascular injury [Recovered/Resolved]
  - Device issue [Not Recovered/Not Resolved]
  - Injection site haemorrhage [Recovered/Resolved]

NARRATIVE: CASE EVENT DATE: 20221208
